FAERS Safety Report 8282207-9 (Version None)
Quarter: 2012Q2

REPORT INFORMATION
  Report Type: 
  Country: None (occurrence: None)
  Receive Date: 20120413
  Receipt Date: 20120404
  Transmission Date: 20120825
  Serious: Yes (Hospitalization)
  Sender: FDA-Public Use
  Company Number: SE-ASTRAZENECA-2012SE15915

PATIENT
  Age: 88 Year
  Sex: Female

DRUGS (10)
  1. ATACAND [Suspect]
     Indication: ESSENTIAL HYPERTENSION
     Route: 048
     Dates: end: 20120217
  2. ALVEDON [Concomitant]
  3. WARFARIN SODIUM [Concomitant]
  4. ZOPIKLON [Concomitant]
  5. FERROUS SULFATE TAB [Concomitant]
  6. FUROSEMIDE [Concomitant]
  7. ARTELAC [Concomitant]
  8. CITALOPRAM HYDROBROMIDE [Concomitant]
  9. POLYETHYLENE GLYCOL [Concomitant]
  10. SELOKEN ZOK [Concomitant]

REACTIONS (4)
  - TONGUE OEDEMA [None]
  - ANGIOEDEMA [None]
  - OEDEMA MOUTH [None]
  - PULMONARY OEDEMA [None]
